FAERS Safety Report 6575053-5 (Version None)
Quarter: 2010Q1

REPORT INFORMATION
  Report Type: 
  Country: None (occurrence: None)
  Receive Date: 20100209
  Receipt Date: 20100201
  Transmission Date: 20100710
  Serious: Yes (Hospitalization)
  Sender: FDA-Public Use
  Company Number: NZ-ASTRAZENECA-2010SE04549

PATIENT
  Age: 18680 Day
  Sex: Male

DRUGS (5)
  1. OMEPRAZOLE [Suspect]
     Indication: GASTROOESOPHAGEAL REFLUX DISEASE
     Route: 048
     Dates: end: 20060316
  2. ALBUTEROL SULFATE AUTOHALER [Concomitant]
     Dosage: 100 RG DAILY
     Route: 055
  3. FLUTICASONE PROPIONATE [Concomitant]
     Route: 055
  4. CALCIUM CARBONATE [Concomitant]
     Dosage: 5 GM DAILY
     Route: 048
  5. CALCIFEROL [Concomitant]
     Route: 048

REACTIONS (4)
  - ARTHRALGIA [None]
  - DYSURIA [None]
  - RASH ERYTHEMATOUS [None]
  - URTICARIA [None]
